FAERS Safety Report 9161399 (Version 1)
Quarter: 2013Q1

REPORT INFORMATION
  Report Type: Report from Study
  Country: US (occurrence: US)
  Receive Date: 20130313
  Receipt Date: 20130313
  Transmission Date: 20140127
  Serious: No
  Sender: FDA-Public Use
  Company Number: US-009507513-1303USA004305

PATIENT
  Sex: Female
  Weight: 45.35 kg

DRUGS (4)
  1. BOCEPREVIR [Suspect]
     Indication: CHRONIC HEPATITIS C
     Dosage: UNK
     Dates: start: 20110803
  2. RIBAVIRIN [Suspect]
     Indication: CHRONIC HEPATITIS C
     Dosage: 800 MG, QD, IN DIVIDED DOSES
     Dates: start: 20110803
  3. PEGINTERFERON ALFA-2A [Suspect]
     Indication: CHRONIC HEPATITIS C
     Dosage: 180 MICROGRAM, QW, PREFILLED SYRINGE
     Dates: start: 20110803
  4. SUBOXONE [Concomitant]

REACTIONS (3)
  - Asthenia [Unknown]
  - Insomnia [Unknown]
  - Depression [Unknown]
